FAERS Safety Report 5712116-8 (Version None)
Quarter: 2008Q2

REPORT INFORMATION
  Report Type: 
  Country: None (occurrence: None)
  Receive Date: 20080417
  Receipt Date: 20080328
  Transmission Date: 20081010
  Serious: Yes (Death, Hospitalization, Congenital Anomaly)
  Sender: FDA-Public Use
  Company Number: 6041937

PATIENT
  Sex: Male

DRUGS (2)
  1. LODOZ (HYDROCHLOROTHIAZIDE, BISOPROLOL FUMARATE) [Suspect]
     Indication: DRUG USE FOR UNKNOWN INDICATION
     Dosage: TRANSPLACENTAL
     Route: 064
  2. OLMESARTAN MEDOXOMIL [Suspect]
     Indication: DRUG USE FOR UNKNOWN INDICATION
     Dosage: TRANSPLACENTAL
     Route: 064

REACTIONS (13)
  - CEREBRAL HYPOPERFUSION [None]
  - CONGENITAL BLADDER ANOMALY [None]
  - CONGENITAL CENTRAL NERVOUS SYSTEM ANOMALY [None]
  - DEATH NEONATAL [None]
  - DRUG EXPOSURE DURING PREGNANCY [None]
  - FOETAL DISORDER [None]
  - FOETAL GROWTH RETARDATION [None]
  - MULTIPLE CONGENITAL ABNORMALITIES [None]
  - POTTER'S SYNDROME [None]
  - PULMONARY HYPOPLASIA [None]
  - SMALL FOR DATES BABY [None]
  - TALIPES [None]
  - UNEVALUABLE EVENT [None]
